FAERS Safety Report 13386999 (Version 1)
Quarter: 2017Q1

REPORT INFORMATION
  Report Type: Report from Study
  Country: CO (occurrence: CO)
  Receive Date: 20170330
  Receipt Date: 20170330
  Transmission Date: 20170429
  Serious: Yes (Other)
  Sender: FDA-Public Use
  Company Number: PHHY2016CO026960

PATIENT
  Age: 45 Year
  Sex: Female
  Weight: 51 kg

DRUGS (1)
  1. VOTRIENT [Suspect]
     Active Substance: PAZOPANIB HYDROCHLORIDE
     Indication: RENAL CELL CARCINOMA
     Dosage: 400 MG, BID
     Route: 048
     Dates: start: 20160212, end: 20170308

REACTIONS (8)
  - Diarrhoea [Unknown]
  - Respiratory disorder [Unknown]
  - Hyperkeratosis [Unknown]
  - Stomatitis [Unknown]
  - Brain neoplasm [Unknown]
  - Drug ineffective [Unknown]
  - Oral mucosal exfoliation [Unknown]
  - Vomiting [Unknown]

NARRATIVE: CASE EVENT DATE: 20160218
